FAERS Safety Report 17555132 (Version 1)
Quarter: 2020Q1

REPORT INFORMATION
  Report Type: Report from Study
  Country: US (occurrence: US)
  Receive Date: 20200318
  Receipt Date: 20200318
  Transmission Date: 20200409
  Serious: Yes (Hospitalization, Other)
  Sender: FDA-Public Use
  Company Number: US-JNJFOC-20200311281

PATIENT
  Sex: Female
  Weight: 74.91 kg

DRUGS (3)
  1. CARDIZEM [Concomitant]
     Active Substance: DILTIAZEM HYDROCHLORIDE
     Indication: ATRIAL FIBRILLATION
  2. ZOLOFT [Concomitant]
     Active Substance: SERTRALINE HYDROCHLORIDE
     Indication: HOT FLUSH
  3. REMICADE [Suspect]
     Active Substance: INFLIXIMAB
     Indication: CROHN^S DISEASE
     Route: 042

REACTIONS (7)
  - Basal cell carcinoma [Unknown]
  - Post procedural infection [Unknown]
  - Impaired healing [Unknown]
  - Appendicitis perforated [Unknown]
  - Tendon rupture [Unknown]
  - Squamous cell carcinoma of skin [Unknown]
  - Infection [Recovered/Resolved]
